FAERS Safety Report 23089827 (Version 1)
Quarter: 2023Q4

REPORT INFORMATION
  Report Type: Spontaneous
  Country: FR (occurrence: FR)
  Receive Date: 20231020
  Receipt Date: 20231020
  Transmission Date: 20240110
  Serious: Yes (Hospitalization, Other)
  Sender: FDA-Public Use
  Company Number: None

PATIENT
  Age: 65 Year
  Sex: Male

DRUGS (4)
  1. KEYTRUDA [Suspect]
     Active Substance: PEMBROLIZUMAB
     Indication: Squamous cell carcinoma of lung
     Dosage: 300 MILLIGRAM, ONCE
     Route: 042
     Dates: start: 20230804, end: 20230804
  2. IMATINIB MESYLATE [Suspect]
     Active Substance: IMATINIB MESYLATE
     Indication: Chronic myeloid leukaemia
     Dosage: 300 MILLIGRAM, QD
     Route: 048
     Dates: start: 20230727, end: 20230905
  3. PACLITAXEL [Suspect]
     Active Substance: PACLITAXEL
     Indication: Squamous cell carcinoma of lung
     Dosage: 230 MILLIGRAM, ONCE
     Route: 042
     Dates: start: 20230804, end: 20230804
  4. CARBOPLATIN [Suspect]
     Active Substance: CARBOPLATIN
     Indication: Squamous cell carcinoma of lung
     Dosage: 470 MILLIGRAM, ONCE
     Route: 042
     Dates: start: 20230804, end: 20230804

REACTIONS (3)
  - Pneumonia [Recovering/Resolving]
  - Pleural effusion [Recovering/Resolving]
  - Generalised oedema [Recovered/Resolved]

NARRATIVE: CASE EVENT DATE: 20230821
